FAERS Safety Report 9339631 (Version 1)
Quarter: 2013Q2

REPORT INFORMATION
  Report Type: Spontaneous
  Country: JP (occurrence: JP)
  Receive Date: 20130610
  Receipt Date: 20130610
  Transmission Date: 20140414
  Serious: Yes (Other)
  Sender: FDA-Public Use
  Company Number: PHHY2011JP104014

PATIENT
  Sex: 0

DRUGS (15)
  1. NEORAL [Suspect]
     Indication: APLASIA PURE RED CELL
     Dosage: 250 MG, DAILY
     Route: 048
  2. NEORAL [Suspect]
     Dosage: 250 MG/DAY DIVIDED INTO 2 DOSES
     Route: 048
  3. NEORAL [Suspect]
     Dosage: 200 MG/DAY (DIVIDED INTO 2 DOSES)
     Route: 048
  4. NEORAL [Suspect]
     Dosage: 150 MG/DAY (DIVIDED INTO 2 DOSES)
     Route: 048
  5. NEORAL [Suspect]
     Dosage: 100 MG/DAY (DIVIDED INTO 2 DOSES)
     Route: 048
  6. NEORAL [Suspect]
     Dosage: 200 MG/DAY DIVIDED INTO 2 DOSES
     Route: 048
  7. NEORAL [Suspect]
     Dosage: 260 MG, DAILY IN TWO DIVIDED DOSES
     Route: 048
     Dates: start: 2011
  8. NEORAL [Suspect]
     Dosage: 150 MG, DAILY DIVIDED INTO 2 DOSES
     Route: 048
  9. NEORAL [Suspect]
     Dosage: 100 MG, DAILY, DIVIDED INTO 2 DOSES
     Route: 048
  10. NEORAL [Suspect]
     Dosage: 200 MG, DAILY, DIVIDED INTO 2 DOSES
     Route: 048
  11. NEORAL [Suspect]
     Dosage: 3 DF, BID
  12. NEORAL [Suspect]
     Dosage: 9 DF, FOUR IN MORNIGN AND FIVE IN EVENING
  13. BAKTAR [Concomitant]
     Indication: PNEUMONIA
     Route: 048
  14. INSULIN [Concomitant]
     Indication: DIABETIC NEPHROPATHY
  15. DIOVAN [Concomitant]
     Route: 048

REACTIONS (13)
  - Diabetic nephropathy [Unknown]
  - Spinal pain [Unknown]
  - Anaemia [Unknown]
  - Nephritis [Unknown]
  - Blood creatinine increased [Unknown]
  - Protein urine present [Unknown]
  - Dizziness [Unknown]
  - Haemoglobin decreased [Unknown]
  - Dyspnoea [Unknown]
  - Oesophageal disorder [Unknown]
  - Dysphagia [Unknown]
  - Gait disturbance [Unknown]
  - Gamma-glutamyltransferase increased [Unknown]
